FAERS Safety Report 5450411-0 (Version None)
Quarter: 2007Q3

REPORT INFORMATION
  Report Type: 
  Country: None (occurrence: None)
  Receive Date: 20070912
  Receipt Date: 20070831
  Transmission Date: 20080115
  Serious: Yes (Hospitalization)
  Sender: FDA-Public Use
  Company Number: DE-SHR-DE-2007-032867

PATIENT
  Sex: Female

DRUGS (1)
  1. BETAFERON [Suspect]

REACTIONS (3)
  - ANOREXIA [None]
  - BLOOD COUNT ABNORMAL [None]
  - WEIGHT DECREASED [None]
